FAERS Safety Report 5384987-9 (Version None)
Quarter: 2007Q3

REPORT INFORMATION
  Report Type: 
  Country: None (occurrence: None)
  Receive Date: 20070709
  Receipt Date: 20070221
  Transmission Date: 20080115
  Serious: Yes (Hospitalization)
  Sender: FDA-Public Use
  Company Number: US-JNJFOC-20070205094

PATIENT
  Age: 14 Month
  Sex: Female
  Weight: 12.7007 kg

DRUGS (1)
  1. MOTRIN [Suspect]
     Indication: PYREXIA
     Dosage: 1 IN 1 TOTAL
     Dates: start: 20070217, end: 20070217

REACTIONS (4)
  - OEDEMA PERIPHERAL [None]
  - PAIN [None]
  - RASH [None]
  - SKIN DISCOLOURATION [None]
